FAERS Safety Report 12305831 (Version 2)
Quarter: 2016Q4

REPORT INFORMATION
  Report Type: Spontaneous
  Country: JP (occurrence: JP)
  Receive Date: 20160426
  Receipt Date: 20161003
  Transmission Date: 20170207
  Serious: Yes (Other)
  Sender: FDA-Public Use
  Company Number: JP-PFIZER INC-2016224960

PATIENT
  Age: 7 Decade
  Sex: Male

DRUGS (1)
  1. MIGLITOL. [Suspect]
     Active Substance: MIGLITOL
     Dosage: UNK
     Route: 048

REACTIONS (1)
  - Colitis ischaemic [Unknown]
